FAERS Safety Report 6277094-4 (Version None)
Quarter: 2009Q3

REPORT INFORMATION
  Report Type: 
  Country: None (occurrence: None)
  Receive Date: 20090722
  Receipt Date: 20090105
  Transmission Date: 20100115
  Serious: Yes (Hospitalization)
  Sender: FDA-Public Use
  Company Number: US-BRISTOL-MYERS SQUIBB COMPANY-14460778

PATIENT
  Age: 45 Year
  Sex: Female
  Weight: 125 kg

DRUGS (6)
  1. COUMADIN [Suspect]
     Indication: THROMBOSIS
     Dosage: 5MG, 2DAYS A WEEK, 2.5MG OTHER DAYS.
     Route: 048
     Dates: start: 20080401
  2. DEPAKOTE [Suspect]
     Indication: BIPOLAR DISORDER
     Route: 048
     Dates: start: 19940101
  3. COGENTIN [Concomitant]
     Indication: BIPOLAR DISORDER
     Route: 048
     Dates: start: 19860101
  4. LORAZEPAM [Concomitant]
     Indication: ANXIETY
     Route: 048
     Dates: start: 20070101
  5. LANSOPRAZOLE [Concomitant]
     Indication: GASTROOESOPHAGEAL REFLUX DISEASE
     Dosage: THERAPY DATES: A WHILE GREATER THAN 1 YEAR-ONGOING
     Route: 048
  6. THIOTHIXENE [Concomitant]
     Indication: BIPOLAR DISORDER
     Route: 048
     Dates: start: 19860101

REACTIONS (9)
  - ABDOMINAL PAIN UPPER [None]
  - ANTICOAGULATION DRUG LEVEL ABOVE THERAPEUTIC [None]
  - BIPOLAR DISORDER [None]
  - CHEST DISCOMFORT [None]
  - DRUG LEVEL DECREASED [None]
  - GASTRITIS EROSIVE [None]
  - NAUSEA [None]
  - POLYP [None]
  - RECTAL HAEMORRHAGE [None]
